FAERS Safety Report 4453830-4 (Version None)
Quarter: 2004Q3

REPORT INFORMATION
  Report Type: 
  Country: None (occurrence: None)
  Receive Date: 20040920
  Receipt Date: 20040908
  Transmission Date: 20050211
  Serious: Yes (Hospitalization)
  Sender: FDA-Public Use
  Company Number: CA-ROCHE-379939

PATIENT
  Age: 75 Year
  Sex: Female
  Weight: 61 kg

DRUGS (4)
  1. IBANDRONIC ACID [Suspect]
     Indication: OSTEOPOROSIS POSTMENOPAUSAL
     Dosage: BLINDED ORAL MEDICATION STOPPED ON 05 SEP 2004, AND BLINDED IV MEDICATION STOPPED ON 08 SEP 2004. D+
     Route: 065
     Dates: start: 20030228
  2. CALCIUM [Concomitant]
     Dates: start: 20030228
  3. VITAMIN D [Concomitant]
     Dates: start: 20030228
  4. RAMIPRIL [Concomitant]
     Dates: start: 20040405, end: 20040422

REACTIONS (1)
  - PANCREATITIS ACUTE [None]
